FAERS Safety Report 14689199 (Version 1)
Quarter: 2018Q1

REPORT INFORMATION
  Report Type: Spontaneous
  Country: US (occurrence: US)
  Receive Date: 20180328
  Receipt Date: 20180328
  Transmission Date: 20180509
  Serious: Yes (Other)
  Sender: FDA-Public Use
  Company Number: US-LUNDBECK-DKLU2046176

PATIENT
  Sex: Female

DRUGS (2)
  1. NORTHERA [Suspect]
     Active Substance: DROXIDOPA
     Route: 065
     Dates: end: 201803
  2. NORTHERA [Suspect]
     Active Substance: DROXIDOPA
     Indication: BLOOD PRESSURE MEASUREMENT
     Route: 065
     Dates: end: 201803

REACTIONS (2)
  - Drug withdrawal convulsions [Unknown]
  - Product use complaint [Unknown]
